FAERS Safety Report 19871465 (Version 2)
Quarter: 2021Q3

REPORT INFORMATION
  Report Type: Spontaneous
  Country: FR (occurrence: FR)
  Receive Date: 20210923
  Receipt Date: 20210928
  Transmission Date: 20211014
  Serious: Yes (Disabling, Other)
  Sender: FDA-Public Use
  Company Number: FR-AUROBINDO-AUR-APL-2021-010915

PATIENT
  Age: 87 Year
  Sex: Male

DRUGS (7)
  1. PREDNISONE. [Suspect]
     Active Substance: PREDNISONE
     Indication: PLASMA CELL MYELOMA
     Dosage: 1 MILLIGRAM/KILOGRAM, ONCE A DAY, ON DAYS 1 TO 4
     Route: 048
  2. PREDNISONE. [Suspect]
     Active Substance: PREDNISONE
     Indication: DISEASE PROGRESSION
  3. IXAZOMIB [Suspect]
     Active Substance: IXAZOMIB
     Indication: PLASMA CELL MYELOMA
     Dosage: 2.3 MILLIGRAM, ON DAY 1, 8, 15 AND 22
     Route: 048
  4. MELPHALAN. [Suspect]
     Active Substance: MELPHALAN
     Indication: PLASMA CELL MYELOMA
     Dosage: 0.2 MILLIGRAM/KILOGRAM, ONCE A DAY, ON DAYS 1 TO 4
     Route: 048
  5. MELPHALAN. [Suspect]
     Active Substance: MELPHALAN
     Indication: DISEASE PROGRESSION
  6. BORTEZOMIB POWDER FOR SOLUTION FOR INJECTION [Suspect]
     Active Substance: BORTEZOMIB
     Indication: PLASMA CELL MYELOMA
     Dosage: 1.3 MILLIGRAM/SQ. METER, ON DAY 1, 8, 15 AND 22
     Route: 065
  7. DEXAMETHASONE;OXYTETRACYCLINE [Concomitant]
     Indication: CHALAZION
     Dosage: UNK
     Route: 061

REACTIONS (4)
  - Off label use [Unknown]
  - Chalazion [Recovered/Resolved]
  - Blepharitis [Recovered/Resolved]
  - Drug ineffective [Unknown]
